FAERS Safety Report 6388592-7 (Version None)
Quarter: 2009Q4

REPORT INFORMATION
  Report Type: 
  Country: None (occurrence: None)
  Receive Date: 20091005
  Receipt Date: 20091002
  Transmission Date: 20100525
  Serious: Yes (Hospitalization)
  Sender: FDA-Public Use
  Company Number: US-JNJFOC-20090806714

PATIENT
  Sex: Male
  Weight: 82 kg

DRUGS (9)
  1. TMC114 [Suspect]
     Route: 048
  2. TMC114 [Suspect]
     Indication: HIV INFECTION
     Route: 048
  3. RITONAVIR [Suspect]
     Indication: HIV INFECTION
     Route: 048
  4. TRUVADA [Suspect]
     Indication: HIV INFECTION
     Route: 048
  5. LISINOPRIL [Concomitant]
  6. TRAZODONE [Concomitant]
  7. BACTRIM DS [Concomitant]
  8. IBUPROFEN [Concomitant]
  9. HYDROCORTISONE [Concomitant]

REACTIONS (1)
  - PANCREATITIS [None]
